FAERS Safety Report 5022060-X (Version None)
Quarter: 2006Q2

REPORT INFORMATION
  Report Type: 
  Country: None (occurrence: None)
  Receive Date: 20060609
  Receipt Date: 20060531
  Transmission Date: 20061013
  Serious: Yes (Death, Life-Threatening)
  Sender: FDA-Public Use
  Company Number: GB-JNJFOC-20051000020

PATIENT
  Sex: Male

DRUGS (11)
  1. DURAGESIC-100 [Suspect]
     Route: 062
  2. DURAGESIC-100 [Suspect]
     Indication: ANALGESIC EFFECT
     Route: 062
  3. ZOMORPH [Concomitant]
     Indication: BACK PAIN
     Route: 065
  4. ORAMORPH SR [Concomitant]
     Indication: BREAKTHROUGH PAIN
     Dosage: TOTAL DAILY DOSE 160MG.
     Route: 048
  5. CO-DANTHRAMER [Concomitant]
     Route: 065
  6. CO-DANTHRAMER [Concomitant]
     Route: 065
  7. SENNA [Concomitant]
     Dosage: 75 TWO PER NIGHT.
     Route: 065
  8. METOCLOPRAMIDE [Concomitant]
     Route: 065
  9. DICLOFLEX [Concomitant]
     Route: 065
  10. FLOMAX [Concomitant]
     Route: 065
  11. PARACETAMOL [Concomitant]
     Route: 065

REACTIONS (10)
  - ANOREXIA [None]
  - BRONCHOPNEUMONIA [None]
  - COMA [None]
  - CONFUSIONAL STATE [None]
  - DEHYDRATION [None]
  - INTESTINAL DILATATION [None]
  - METASTATIC NEOPLASM [None]
  - PHARMACEUTICAL PRODUCT COMPLAINT [None]
  - SOMNOLENCE [None]
  - VOMITING [None]
